FAERS Safety Report 5511012-9 (Version None)
Quarter: 2007Q4

REPORT INFORMATION
  Report Type: 
  Country: None (occurrence: None)
  Receive Date: 20071109
  Receipt Date: 20071029
  Transmission Date: 20080405
  Serious: Yes (Other)
  Sender: FDA-Public Use
  Company Number: PHHO2007IT12475

PATIENT
  Age: 33 Year
  Sex: Male
  Weight: 52 kg

DRUGS (4)
  1. EXJADE [Suspect]
     Indication: BLOOD IRON INCREASED
     Dosage: 20 MG/KG, QD
     Route: 048
     Dates: start: 20061208, end: 20070516
  2. EXJADE [Suspect]
     Dosage: 30 MG/KG, QD
     Dates: start: 20070517, end: 20070611
  3. EXJADE [Suspect]
     Dosage: 20 MG/KG, QD
     Dates: start: 20070612, end: 20070621
  4. MEDROL [Suspect]
     Dates: start: 20070719

REACTIONS (11)
  - ABDOMINAL PAIN [None]
  - ANAEMIA HAEMOLYTIC AUTOIMMUNE [None]
  - ANOREXIA [None]
  - AUTOANTIBODY POSITIVE [None]
  - DIABETES MELLITUS [None]
  - FATIGUE [None]
  - HYPERSPLENISM [None]
  - LEUKOPENIA [None]
  - NEUTROPENIA [None]
  - THROMBOCYTOPENIA [None]
  - WEIGHT DECREASED [None]
